FAERS Safety Report 22164881 (Version 2)
Quarter: 2023Q2

REPORT INFORMATION
  Report Type: Spontaneous
  Country: DE (occurrence: DE)
  Receive Date: 20230403
  Receipt Date: 20230410
  Transmission Date: 20230721
  Serious: Yes (Other)
  Sender: FDA-Public Use
  Company Number: DE-ROCHE-3314053

PATIENT
  Sex: Female

DRUGS (16)
  1. BENDAMUSTINE [Suspect]
     Active Substance: BENDAMUSTINE
     Indication: Diffuse large B-cell lymphoma
     Dosage: UNK (IN SECOND LINE THE PATIENT WAS TREATED RITUXIMAB WITH POLATUZUMAB AND BENDAMUSTINE, RESPONSE: D
     Route: 065
     Dates: start: 20220501, end: 20220601
  2. OXALIPLATIN [Suspect]
     Active Substance: OXALIPLATIN
     Indication: Diffuse large B-cell lymphoma
     Dosage: UNK (IN FIFTH LINE THE PATIENT WAS TREATED WITH GEMOX (GEMCITABINE OXALIPLATIN), RESPONSE: NO RESPON
     Route: 065
     Dates: start: 20230201, end: 20230308
  3. LENALIDOMIDE [Suspect]
     Active Substance: LENALIDOMIDE
     Indication: Diffuse large B-cell lymphoma
     Dosage: UNK (IN FOURTH LINE THE PATIENT WAS TREATED WITH TAFASIATAMAB AND LENALIDOMIDE RESPONSE: NO RESPONSE
     Route: 065
     Dates: start: 20230101, end: 20230201
  4. GEMCITABINE [Suspect]
     Active Substance: GEMCITABINE
     Indication: Diffuse large B-cell lymphoma
     Dosage: UNK (IN FIFTH LINE THE PATIENT WAS TREATED WITH GEMOX (GEMCITABINE OXALIPLATIN), RESPONSE: NO RESPON
     Route: 065
     Dates: start: 20230201, end: 20230308
  5. VINCRISTINE [Suspect]
     Active Substance: VINCRISTINE
     Indication: Diffuse large B-cell lymphoma
     Dosage: UNK
     Route: 065
     Dates: start: 20220201, end: 20220501
  6. PREDNISONE [Suspect]
     Active Substance: PREDNISONE
     Indication: Diffuse large B-cell lymphoma
     Dosage: UNK
     Route: 065
     Dates: start: 20220201, end: 20220501
  7. DOXORUBICIN HYDROCHLORIDE [Suspect]
     Active Substance: DOXORUBICIN HYDROCHLORIDE
     Indication: Diffuse large B-cell lymphoma
     Dosage: UNK
     Route: 065
     Dates: start: 20220201, end: 20220501
  8. RITUXIMAB [Suspect]
     Active Substance: RITUXIMAB
     Indication: Diffuse large B-cell lymphoma
     Dosage: UNK (THE FIRST ADMINISTRATION WAS WITH RITUXIMAB BIOSIMILAR, AND FOR THE SUBSEQUENT ADMINISTRATIONS
     Route: 065
     Dates: start: 20220201
  9. RITUXIMAB [Suspect]
     Active Substance: RITUXIMAB
     Dosage: UNK (THE FIRST ADMINISTRATION WAS WITH RITUXIMAB BIOSIMILAR, AND FOR THE SUBSEQUENT ADMINISTRATIONS
     Route: 065
     Dates: start: 20220501
  10. CYCLOPHOSPHAMIDE [Suspect]
     Active Substance: CYCLOPHOSPHAMIDE
     Indication: Diffuse large B-cell lymphoma
     Dosage: UNK
     Route: 065
     Dates: start: 20220201, end: 20220501
  11. CYCLOPHOSPHAMIDE\DOXORUBICIN\PREDNISONE\VINCRISTINE [Suspect]
     Active Substance: CYCLOPHOSPHAMIDE\DOXORUBICIN\PREDNISONE\VINCRISTINE
     Indication: Diffuse large B-cell lymphoma
     Dosage: UNK (IN FIRST LINE THE PATIENT WAS TREATED WITH RITUXIMAB AND CHOP, RESPONSE: PROGRESSIVE DISEASE)
     Route: 065
     Dates: start: 20220201, end: 20220501
  12. MABTHERA [Suspect]
     Active Substance: RITUXIMAB
     Indication: Diffuse large B-cell lymphoma
     Dosage: UNK (IN FIRST LINE THE PATIENT WAS TREATED WITH RITUXIMAB AND CHOP, RESPONSE: PROGRESSIVE DISEASE)
     Route: 058
     Dates: start: 20220201, end: 20220501
  13. MABTHERA [Suspect]
     Active Substance: RITUXIMAB
     Dosage: UNK (IN SECOND LINE THE PATIENT WAS TREATED RITUXIMAB WITH POLATUZUMAB AND BENDAMUSTINE, RESPONSE: D
     Route: 058
     Dates: start: 20220501, end: 20220601
  14. MABTHERA [Suspect]
     Active Substance: RITUXIMAB
     Dosage: UNK
     Route: 065
  15. MABTHERA [Suspect]
     Active Substance: RITUXIMAB
     Dosage: UNK (THE FIRST ADMINISTRATION WAS WITH RITUXIMAB BIOSIMILAR, AND FOR THE SUBSEQUENT ADMINISTRATIONS
     Route: 058
     Dates: end: 20220501
  16. MABTHERA [Suspect]
     Active Substance: RITUXIMAB
     Dosage: UNK (THE FIRST ADMINISTRATION WAS WITH RITUXIMAB BIOSIMILAR, AND FOR THE SUBSEQUENT ADMINISTRATIONS
     Route: 058
     Dates: end: 20220601

REACTIONS (1)
  - Lymphoma [Unknown]
